FAERS Safety Report 10554245 (Version 1)
Quarter: 2014Q4

REPORT INFORMATION
  Report Type: Spontaneous
  Country: US (occurrence: None)
  Receive Date: 20141028
  Receipt Date: 20141028
  Transmission Date: 20150529
  Serious: Yes (Hospitalization)
  Sender: FDA-Public Use
  Company Number: 2014DEPUS00608

PATIENT
  Age: 71 Year
  Sex: Male
  Weight: 86.2 kg

DRUGS (17)
  1. ASPIRIN (ACETYLSALICYLIC ACID) [Concomitant]
     Active Substance: ASPIRIN
  2. RITUXIMAB (RITUXIMAB) [Concomitant]
     Active Substance: RITUXIMAB
  3. AMBIEN [Concomitant]
     Active Substance: ZOLPIDEM TARTRATE
  4. COLACE [Concomitant]
     Active Substance: DOCUSATE SODIUM
  5. ALLOPURINOL. [Concomitant]
     Active Substance: ALLOPURINOL
  6. FLUTICASONE PROPIONATE. [Concomitant]
     Active Substance: FLUTICASONE PROPIONATE
  7. KETOCONAZOLE. [Concomitant]
     Active Substance: KETOCONAZOLE
  8. CO Q-10 (UBIDECARENONE) [Concomitant]
  9. SIMVASTATIN. [Concomitant]
     Active Substance: SIMVASTATIN
  10. ACYCLOVIR. [Concomitant]
     Active Substance: ACYCLOVIR
  11. BENDAMUSTINE [Concomitant]
     Active Substance: BENDAMUSTINE
  12. DEXAMETHASONE (DEXAMETHASONE SODIUM PHOSPHATE) [Concomitant]
  13. FIBERCON (POLYCARBOPHIL CALCIUM) [Concomitant]
  14. DEPOCYT [Suspect]
     Active Substance: CYTARABINE
     Indication: CHRONIC LYMPHOCYTIC LEUKAEMIA
     Dosage: 2 DOSES IN 28 DAYS
     Route: 037
     Dates: start: 20140717, end: 20140814
  15. LIDOCAINE (LIDOCAINE HYDROCHLORIDE) [Concomitant]
  16. PATANASE (OLOPATADINE HYDROCHLORIDE) [Concomitant]
  17. ZYRTEC [Concomitant]
     Active Substance: CETIRIZINE HYDROCHLORIDE

REACTIONS (5)
  - Pyrexia [None]
  - Headache [None]
  - Meningitis bacterial [None]
  - Cognitive disorder [None]
  - Procedural complication [None]

NARRATIVE: CASE EVENT DATE: 20140814
